FAERS Safety Report 4580510-7 (Version None)
Quarter: 2005Q1

REPORT INFORMATION
  Report Type: 
  Country: None (occurrence: None)
  Receive Date: 20050214
  Receipt Date: 20040211
  Transmission Date: 20050727
  Serious: Yes (Disabling)
  Sender: FDA-Public Use
  Company Number: US-GLAXOSMITHKLINE-A0497784A

PATIENT
  Age: 48 Year
  Sex: Female

DRUGS (10)
  1. LAMICTAL [Suspect]
     Dosage: 350MG TWICE PER DAY
     Route: 048
     Dates: start: 20010501
  2. BEXTRA [Concomitant]
  3. HYDROCHLOROTHIAZIDE [Concomitant]
  4. FAMOTIDINE [Concomitant]
  5. DILANTIN [Concomitant]
  6. TOPAMAX [Concomitant]
  7. OSCAL-500 [Concomitant]
  8. TIMOLOL MALEATE [Concomitant]
  9. BISACODYL [Concomitant]
  10. MULTI-VITAMIN [Concomitant]

REACTIONS (2)
  - RASH [None]
  - SWELLING [None]
